FAERS Safety Report 22223215 (Version 2)
Quarter: 2023Q2

REPORT INFORMATION
  Report Type: Other
  Country: JP (occurrence: JP)
  Receive Date: 20230418
  Receipt Date: 20230601
  Transmission Date: 20230722
  Serious: Yes (Life-Threatening, Hospitalization, Other)
  Sender: FDA-Public Use
  Company Number: JP-CHUGAI-2022005429

PATIENT
  Age: 68 Year
  Sex: Female
  Weight: 54 kg

DRUGS (16)
  1. ATEZOLIZUMAB [Suspect]
     Active Substance: ATEZOLIZUMAB
     Indication: Lung adenocarcinoma
     Route: 041
     Dates: start: 20210728
  2. ATEZOLIZUMAB [Suspect]
     Active Substance: ATEZOLIZUMAB
     Route: 041
     Dates: start: 20210118, end: 20211209
  3. ATEZOLIZUMAB [Suspect]
     Active Substance: ATEZOLIZUMAB
     Route: 041
     Dates: start: 20220106, end: 20220804
  4. BEVACIZUMAB [Suspect]
     Active Substance: BEVACIZUMAB
     Indication: Lung adenocarcinoma
     Route: 041
     Dates: start: 20210728, end: 20210728
  5. BEVACIZUMAB [Suspect]
     Active Substance: BEVACIZUMAB
     Dosage: 735 MILLIGRAM, QD
     Route: 041
     Dates: start: 20210825, end: 20210825
  6. BEVACIZUMAB [Suspect]
     Active Substance: BEVACIZUMAB
     Dosage: 720 MILLIGRAM, ONCE/4WEEKS
     Route: 041
     Dates: start: 20210922
  7. BEVACIZUMAB [Suspect]
     Active Substance: BEVACIZUMAB
     Route: 041
     Dates: start: 20211118, end: 20211209
  8. BEVACIZUMAB [Suspect]
     Active Substance: BEVACIZUMAB
     Route: 041
     Dates: start: 20220106, end: 20220804
  9. CARBOPLATIN [Suspect]
     Active Substance: CARBOPLATIN
     Indication: Lung adenocarcinoma
     Route: 041
     Dates: start: 20210728, end: 20210728
  10. CARBOPLATIN [Suspect]
     Active Substance: CARBOPLATIN
     Route: 041
     Dates: start: 20210825, end: 20210825
  11. CARBOPLATIN [Suspect]
     Active Substance: CARBOPLATIN
     Route: 041
     Dates: start: 20210922, end: 20210922
  12. CARBOPLATIN [Suspect]
     Active Substance: CARBOPLATIN
     Dosage: MOST RECENT DOSE: 21/OCT/2021
     Route: 041
     Dates: start: 20211021
  13. PACLITAXEL [Suspect]
     Active Substance: PACLITAXEL
     Indication: Lung adenocarcinoma
     Route: 041
     Dates: start: 20210728, end: 20210728
  14. PACLITAXEL [Suspect]
     Active Substance: PACLITAXEL
     Route: 041
     Dates: start: 20210825, end: 20210825
  15. PACLITAXEL [Suspect]
     Active Substance: PACLITAXEL
     Route: 041
     Dates: start: 20210922, end: 20210922
  16. PACLITAXEL [Suspect]
     Active Substance: PACLITAXEL
     Dosage: MOST RECENT DOSE: 21/OCT/2021
     Route: 041
     Dates: start: 20211021

REACTIONS (5)
  - Nausea [Recovered/Resolved]
  - Neuropathy peripheral [Not Recovered/Not Resolved]
  - Chronic kidney disease [Not Recovered/Not Resolved]
  - Supraventricular tachycardia [Recovering/Resolving]
  - Ventricular fibrillation [Unknown]

NARRATIVE: CASE EVENT DATE: 20210730
